FAERS Safety Report 9826231 (Version 1)
Quarter: 2014Q1

REPORT INFORMATION
  Report Type: Spontaneous
  Country: US (occurrence: None)
  Receive Date: 20140116
  Receipt Date: 20140116
  Transmission Date: 20141002
  Serious: Yes (Life-Threatening, Hospitalization, Disabling)
  Sender: FDA-Public Use
  Company Number: None

PATIENT
  Age: 41 Year
  Sex: Female
  Weight: 68.04 kg

DRUGS (1)
  1. MIRENA IUD [Suspect]

REACTIONS (8)
  - Alopecia [None]
  - Feeling abnormal [None]
  - Aphasia [None]
  - Headache [None]
  - Coordination abnormal [None]
  - Gait disturbance [None]
  - Hemiplegia [None]
  - Fatigue [None]
